FAERS Safety Report 15883440 (Version 2)
Quarter: 2019Q1

REPORT INFORMATION
  Report Type: Spontaneous
  Country: SE (occurrence: SE)
  Receive Date: 20190129
  Receipt Date: 20190201
  Transmission Date: 20190417
  Serious: Yes (Other)
  Sender: FDA-Public Use
  Company Number: SE-ACCORD-103499

PATIENT
  Age: 61 Year
  Sex: Male

DRUGS (6)
  1. LERGIGAN [Concomitant]
  2. AMLODIPINE [Suspect]
     Active Substance: AMLODIPINE BESYLATE
     Indication: HYPERTENSION
     Route: 048
     Dates: start: 20180202, end: 20180316
  3. CITODON [Concomitant]
     Active Substance: ACETAMINOPHEN\CODEINE PHOSPHATE
  4. LYRICA [Concomitant]
     Active Substance: PREGABALIN
  5. LEVAXIN [Concomitant]
     Active Substance: LEVOTHYROXINE SODIUM
  6. IMOVANE [Concomitant]
     Active Substance: ZOPICLONE

REACTIONS (1)
  - Hypokalaemia [Unknown]

NARRATIVE: CASE EVENT DATE: 201802
